FAERS Safety Report 13921401 (Version 2)
Quarter: 2017Q3

REPORT INFORMATION
  Report Type: Spontaneous
  Country: CN (occurrence: CN)
  Receive Date: 20170830
  Receipt Date: 20170925
  Transmission Date: 20171127
  Serious: Yes (Hospitalization)
  Sender: FDA-Public Use
  Company Number: CN-ASTRAZENECA-2017SE87576

PATIENT
  Age: 76 Year
  Sex: Female

DRUGS (3)
  1. BRICANYL [Suspect]
     Active Substance: TERBUTALINE SULFATE
     Indication: BRONCHITIS
     Dosage: 1.0MG UNKNOWN
     Route: 055
  2. PULMICORT RESPULES [Suspect]
     Active Substance: BUDESONIDE
     Indication: BRONCHITIS
     Dosage: 2.0MG UNKNOWN
     Route: 055
  3. SODIUM CHLORIDE. [Concomitant]
     Active Substance: SODIUM CHLORIDE
     Indication: BRONCHITIS
     Dosage: THREE TIMES A DAY
     Route: 065

REACTIONS (4)
  - Dysphonia [Unknown]
  - Pneumonia fungal [Unknown]
  - Oedema peripheral [Recovering/Resolving]
  - Mouth ulceration [Unknown]

NARRATIVE: CASE EVENT DATE: 20170821
